FAERS Safety Report 22391573 (Version 2)
Quarter: 2023Q2

REPORT INFORMATION
  Report Type: Spontaneous
  Country: ES (occurrence: ES)
  Receive Date: 20230601
  Receipt Date: 20230605
  Transmission Date: 20230722
  Serious: Yes (Other)
  Sender: FDA-Public Use
  Company Number: ES-CELLTRION INC.-2023ES010900

PATIENT

DRUGS (3)
  1. RITUXIMAB [Suspect]
     Active Substance: RITUXIMAB
     Indication: Granulomatosis with polyangiitis
     Dosage: 13 WEEKS FROM THE LAST RITUXIMAB DOSE TO THE FIRST VACCINE
  2. RITUXIMAB [Suspect]
     Active Substance: RITUXIMAB
     Dosage: 34 WEEKS FROM THE LAST RITUXIMAB DOSE TO THE THIRD VACCINE
  3. TOZINAMERAN [Interacting]
     Active Substance: TOZINAMERAN
     Indication: COVID-19 prophylaxis

REACTIONS (3)
  - Humoral immune defect [Unknown]
  - COVID-19 [Unknown]
  - Vaccine interaction [Unknown]
